FAERS Safety Report 6719961-0 (Version None)
Quarter: 2010Q2

REPORT INFORMATION
  Report Type: 
  Country: None (occurrence: None)
  Receive Date: 20100507
  Receipt Date: 20100413
  Transmission Date: 20101027
  Serious: Yes (Hospitalization, Other)
  Sender: FDA-Public Use
  Company Number: 2010-1070

PATIENT
  Age: 58 Year
  Sex: Male

DRUGS (3)
  1. SOMATULINE L.P. 120MG (LANREOTIDE AUTOGEL) (LANREOTIDE) (LANREOTIDE) [Suspect]
     Indication: ACROMEGALY
     Dosage: 120 MG (120 MG, 1 IN 4 WK), INTRAMUSCULAR
     Route: 030
     Dates: start: 20071201, end: 20091001
  2. CREON [Suspect]
     Dosage: 25000 UNITS, 200 MG
     Dates: start: 20080501
  3. URSOLVAN (URSODEOXYCHOLIC AICD) [Suspect]
     Indication: DRUG USE FOR UNKNOWN INDICATION
     Dosage: 200 MG
     Dates: start: 20080501

REACTIONS (6)
  - COAGULATION FACTOR VII LEVEL DECREASED [None]
  - COAGULATION FACTOR X LEVEL DECREASED [None]
  - DIARRHOEA [None]
  - DYSPEPSIA [None]
  - PROTHROMBIN LEVEL DECREASED [None]
  - VITAMIN K DEFICIENCY [None]
